FAERS Safety Report 4879701-7 (Version None)
Quarter: 2006Q1

REPORT INFORMATION
  Report Type: 
  Country: None (occurrence: None)
  Receive Date: 20060111
  Receipt Date: 20060102
  Transmission Date: 20060701
  Serious: Yes (Hospitalization)
  Sender: FDA-Public Use
  Company Number: 2005168013

PATIENT
  Age: 75 Year
  Sex: Male

DRUGS (11)
  1. FLUCONAZOLE [Suspect]
     Indication: ILL-DEFINED DISORDER
  2. SINTROM [Suspect]
     Indication: ILL-DEFINED DISORDER
  3. METRONIDAZOLE [Suspect]
     Indication: ILL-DEFINED DISORDER
  4. ALLOPURINOL [Concomitant]
  5. OMEPRAZOLE [Concomitant]
  6. FUROSEMIDE [Concomitant]
  7. DIGOXIN [Concomitant]
  8. PRAVASTATIN [Concomitant]
  9. XANAX [Concomitant]
  10. DECAPEPTYL (GONADORELIN) [Concomitant]
  11. SERETIDE (FLUTICASONE PROPIONATE, SALMETEROL XINAFOATE) [Concomitant]

REACTIONS (9)
  - ASTHENIA [None]
  - CLOSTRIDIUM DIFFICILE TOXIN TEST POSITIVE [None]
  - COLITIS [None]
  - DRUG INTERACTION [None]
  - HAEMOGLOBIN DECREASED [None]
  - INTERNATIONAL NORMALISED RATIO [None]
  - MALAISE [None]
  - PROTHROMBIN TIME RATIO DECREASED [None]
  - RECTAL HAEMORRHAGE [None]
